FAERS Safety Report 12372092 (Version 1)
Quarter: 2016Q2

REPORT INFORMATION
  Report Type: Spontaneous
  Country: US (occurrence: US)
  Receive Date: 20160516
  Receipt Date: 20160516
  Transmission Date: 20160815
  Serious: Yes (Hospitalization, Other)
  Sender: FDA-Public Use
  Company Number: US-MDT-ADR-2016-00875

PATIENT
  Age: 33 Year
  Sex: Male

DRUGS (13)
  1. ZOFRAN [Suspect]
     Active Substance: ONDANSETRON HYDROCHLORIDE
     Route: 065
  2. TYLENOL [Suspect]
     Active Substance: ACETAMINOPHEN
     Route: 065
  3. ZANTAC [Suspect]
     Active Substance: RANITIDINE HYDROCHLORIDE
     Route: 065
  4. DILAUDID [Suspect]
     Active Substance: HYDROMORPHONE HYDROCHLORIDE
     Dosage: 16.12 MCG/DAY
     Route: 037
     Dates: start: 20160509
  5. LEXOPRIL [Suspect]
     Active Substance: UNSPECIFIED INGREDIENT
     Route: 065
  6. BACLOFEN. [Suspect]
     Active Substance: BACLOFEN
     Route: 037
     Dates: start: 20160504
  7. BACLOFEN. [Suspect]
     Active Substance: BACLOFEN
     Dosage: 94.8 MCG/DAY
     Route: 037
     Dates: start: 20160509
  8. BACLOFEN. [Suspect]
     Active Substance: BACLOFEN
     Dosage: 189.7 MCG/DAY
     Route: 037
  9. DILAUDID [Suspect]
     Active Substance: HYDROMORPHONE HYDROCHLORIDE
     Dosage: 32.24 MCG/DAY
     Route: 037
  10. BACLOFEN. [Suspect]
     Active Substance: BACLOFEN
     Route: 037
  11. DILAUDID [Suspect]
     Active Substance: HYDROMORPHONE HYDROCHLORIDE
     Route: 037
     Dates: start: 20160504
  12. VALIUM [Suspect]
     Active Substance: DIAZEPAM
     Route: 065
  13. DILAUDID [Suspect]
     Active Substance: HYDROMORPHONE HYDROCHLORIDE
     Route: 037

REACTIONS (4)
  - Agitation [Unknown]
  - Hyperhidrosis [Unknown]
  - Drug withdrawal syndrome [Unknown]
  - Granuloma [Unknown]

NARRATIVE: CASE EVENT DATE: 20150415
